FAERS Safety Report 14058228 (Version 1)
Quarter: 2017Q4

REPORT INFORMATION
  Report Type: Spontaneous
  Country: FR (occurrence: FR)
  Receive Date: 20171006
  Receipt Date: 20171006
  Transmission Date: 20180321
  Serious: Yes (Other)
  Sender: FDA-Public Use
  Company Number: FR-MERCK KGAA-2029151

PATIENT
  Age: 80 Year
  Sex: Female

DRUGS (9)
  1. NOVOTHYROX [Suspect]
     Active Substance: LEVOTHYROXINE SODIUM
     Indication: HYPOTHYROIDISM
     Route: 048
     Dates: start: 20170512, end: 20170912
  2. STAGID [Concomitant]
     Active Substance: METFORMIN PAMOATE
  3. APROVEL [Concomitant]
     Active Substance: IRBESARTAN
  4. VESICARE [Concomitant]
     Active Substance: SOLIFENACIN SUCCINATE
  5. INIPOMP [Concomitant]
     Active Substance: PANTOPRAZOLE SODIUM
  6. PRAVASTATIN. [Concomitant]
     Active Substance: PRAVASTATIN
  7. SERETIDE [Concomitant]
     Active Substance: FLUTICASONE PROPIONATE\SALMETEROL XINAFOATE
  8. ADENURIC [Concomitant]
     Active Substance: FEBUXOSTAT
  9. AIROMIR [Concomitant]
     Active Substance: ALBUTEROL SULFATE

REACTIONS (6)
  - Blood thyroid stimulating hormone increased [Not Recovered/Not Resolved]
  - Alopecia [Not Recovered/Not Resolved]
  - Somnolence [Not Recovered/Not Resolved]
  - Product formulation issue [Not Recovered/Not Resolved]
  - Ecchymosis [Not Recovered/Not Resolved]
  - Muscle spasms [Not Recovered/Not Resolved]

NARRATIVE: CASE EVENT DATE: 20170630
